FAERS Safety Report 12699832 (Version 1)
Quarter: 2016Q3

REPORT INFORMATION
  Report Type: Spontaneous
  Country: US (occurrence: US)
  Receive Date: 20160830
  Receipt Date: 20160830
  Transmission Date: 20161109
  Serious: Yes (Hospitalization, Other)
  Sender: FDA-Public Use
  Company Number: US-MYLANLABS-2016M1036587

PATIENT

DRUGS (10)
  1. AMITRIPTYLINE [Suspect]
     Active Substance: AMITRIPTYLINE
     Indication: DEMENTIA ALZHEIMER^S TYPE
     Dosage: 20 MG, AM
     Route: 065
  2. CHLORDIAZEPOXIDE. [Suspect]
     Active Substance: CHLORDIAZEPOXIDE
     Indication: DEMENTIA ALZHEIMER^S TYPE
     Dosage: 50 MG, AM
     Route: 065
  3. AMITRIPTYLINE [Suspect]
     Active Substance: AMITRIPTYLINE
     Dosage: 30 MG, HS
     Route: 065
  4. CHLORDIAZEPOXIDE. [Suspect]
     Active Substance: CHLORDIAZEPOXIDE
     Dosage: 75 MG, HS
     Route: 065
  5. SERTRALINE [Concomitant]
     Active Substance: SERTRALINE HYDROCHLORIDE
     Indication: DEMENTIA ALZHEIMER^S TYPE
     Dosage: IN THE MORNING
     Route: 065
  6. OLANZAPINE. [Suspect]
     Active Substance: OLANZAPINE
     Indication: DEMENTIA ALZHEIMER^S TYPE
     Dosage: 15 MG, HS
     Route: 065
  7. CHLORDIAZEPOXIDE. [Suspect]
     Active Substance: CHLORDIAZEPOXIDE
     Dosage: 25 MG, Q6H AS NEEDED
  8. TRAZODONE [Concomitant]
     Active Substance: TRAZODONE HYDROCHLORIDE
     Indication: DEMENTIA ALZHEIMER^S TYPE
     Dosage: NIGHTLY AT BEDTIME
     Route: 065
  9. TOPIRAMATE. [Suspect]
     Active Substance: TOPIRAMATE
     Dosage: 100 MG, HS
  10. TOPIRAMATE. [Suspect]
     Active Substance: TOPIRAMATE
     Indication: DEMENTIA ALZHEIMER^S TYPE
     Dosage: 100 MG, BID
     Route: 065

REACTIONS (3)
  - Aggression [Recovered/Resolved]
  - Pneumonia [Unknown]
  - Delusion of replacement [Recovered/Resolved]
